FAERS Safety Report 8848679 (Version 1)
Quarter: 2012Q4

REPORT INFORMATION
  Report Type: 
  Country: US (occurrence: US)
  Receive Date: 20121018
  Receipt Date: 20121018
  Transmission Date: 20130627
  Serious: No
  Sender: FDA-Public Use
  Company Number: US-ASTRAZENECA-2012SE78642

PATIENT
  Age: 69 Year
  Sex: Female
  Weight: 68 kg

DRUGS (4)
  1. NEXIUM [Suspect]
     Indication: BARRETT^S OESOPHAGUS
     Route: 048
  2. DULERA [Concomitant]
  3. SPIRIVA [Concomitant]
  4. PREMPRO [Concomitant]

REACTIONS (3)
  - Gait disturbance [Unknown]
  - Arthralgia [Unknown]
  - Off label use [Unknown]
